FAERS Safety Report 8435080-X (Version None)
Quarter: 2012Q2

REPORT INFORMATION
  Report Type: 
  Country: None (occurrence: None)
  Receive Date: 20120614
  Receipt Date: 20120608
  Transmission Date: 20120825
  Serious: Yes (Hospitalization)
  Sender: FDA-Public Use
  Company Number: PHHO2011US07535

PATIENT
  Sex: Male
  Weight: 89.1 kg

DRUGS (4)
  1. CLONIDINE [Concomitant]
     Indication: HYPERTENSION
     Dosage: UNK
     Dates: start: 20110424, end: 20110424
  2. EXELON [Suspect]
     Indication: DEMENTIA ALZHEIMER'S TYPE
     Dosage: 13.3 MG, QD
     Route: 062
     Dates: start: 20101113
  3. ASPIRIN [Concomitant]
  4. FLOMAX [Suspect]

REACTIONS (3)
  - SYNCOPE [None]
  - BRADYCARDIA [None]
  - CONCOMITANT DISEASE PROGRESSION [None]
